FAERS Safety Report 8916908 (Version 1)
Quarter: 2012Q4

REPORT INFORMATION
  Report Type: Report from Study
  Country: US (occurrence: US)
  Receive Date: 20121120
  Receipt Date: 20121120
  Transmission Date: 20130627
  Serious: Yes (Death)
  Sender: FDA-Public Use
  Company Number: US-ROCHE-1156325

PATIENT

DRUGS (3)
  1. TRASTUZUMAB [Suspect]
     Indication: BREAST CANCER
     Route: 065
  2. TAXOTERE [Suspect]
     Indication: BREAST CANCER
     Route: 065
  3. CARBOPLATIN [Suspect]
     Indication: BREAST CANCER
     Route: 065

REACTIONS (1)
  - Death [Fatal]
